FAERS Safety Report 5977661-9 (Version None)
Quarter: 2008Q4

REPORT INFORMATION
  Report Type: 
  Country: None (occurrence: None)
  Receive Date: 20081203
  Receipt Date: 20081125
  Transmission Date: 20090506
  Serious: Yes (Life-Threatening, Hospitalization, Other)
  Sender: FDA-Public Use
  Company Number: BR-ASTRAZENECA-2008UW26040

PATIENT
  Age: 63 Year
  Sex: Male

DRUGS (3)
  1. CRESTOR [Suspect]
     Indication: HYPERLIPIDAEMIA
     Route: 048
     Dates: start: 20081113, end: 20081116
  2. ENALAPRIL MALEATE [Concomitant]
     Indication: HYPERTENSION
     Route: 048
     Dates: end: 20081113
  3. METHYLDOPA [Concomitant]
     Indication: HYPERTENSION
     Route: 048
     Dates: end: 20081113

REACTIONS (2)
  - HYPOTHYROIDISM [None]
  - RHABDOMYOLYSIS [None]
